FAERS Safety Report 5824423-9 (Version None)
Quarter: 2008Q3

REPORT INFORMATION
  Report Type: 
  Country: None (occurrence: None)
  Receive Date: 20080728
  Receipt Date: 20080718
  Transmission Date: 20090109
  Serious: Yes (Hospitalization)
  Sender: FDA-Public Use
  Company Number: B0506263A

PATIENT
  Age: 54 Year
  Sex: Female
  Weight: 68 kg

DRUGS (4)
  1. TYVERB [Suspect]
     Dosage: 1250MG PER DAY
     Route: 048
     Dates: start: 20071214, end: 20080101
  2. CAPECITABINE [Suspect]
     Dosage: 1000MG CYCLIC
     Route: 048
     Dates: start: 20071208
  3. BISOPROLOL FUMARATE [Suspect]
     Dates: start: 20050101
  4. PERINDOPRIL ERBUMINE [Suspect]
     Dates: start: 20050101

REACTIONS (6)
  - ASTHENIA [None]
  - CHOLELITHIASIS [None]
  - DEHYDRATION [None]
  - DIARRHOEA [None]
  - PANCREATITIS ACUTE [None]
  - RENAL FAILURE ACUTE [None]
